FAERS Safety Report 7307596-0 (Version None)
Quarter: 2011Q1

REPORT INFORMATION
  Report Type: 
  Country: None (occurrence: None)
  Receive Date: 20110223
  Receipt Date: 20110209
  Transmission Date: 20110831
  Serious: No
  Sender: FDA-Public Use
  Company Number: US-B.I. PHARMACEUTICALS,INC./RIDGEFIELD-2011-BP-02662BP

PATIENT
  Age: 83 Year
  Sex: Male

DRUGS (7)
  1. PRADAXA [Suspect]
  2. OMEPRAZOLE [Concomitant]
     Indication: GASTROOESOPHAGEAL REFLUX DISEASE
     Route: 048
  3. COLACE [Concomitant]
     Indication: CONSTIPATION
     Route: 048
  4. ASA [Concomitant]
  5. FLOMAX [Suspect]
     Indication: BENIGN PROSTATIC HYPERPLASIA
     Route: 042
  6. SIMVASTATIN [Concomitant]
  7. DILAZEM [Concomitant]

REACTIONS (4)
  - FALL [None]
  - CONCUSSION [None]
  - ATRIAL FIBRILLATION [None]
  - HEADACHE [None]
